FAERS Safety Report 10257460 (Version 1)
Quarter: 2014Q2

REPORT INFORMATION
  Report Type: Spontaneous
  Country: FR (occurrence: None)
  Receive Date: 20140620
  Receipt Date: 20140620
  Transmission Date: 20141212
  Serious: Yes (Death)
  Sender: FDA-Public Use
  Company Number: FK201402401

PATIENT
  Age: 72 Year
  Sex: Male
  Weight: 70 kg

DRUGS (1)
  1. ROPIVACAINE (MANUFACTURER UNKNOWN) (ROPIVACAINE) (ROPIVACAINE) [Suspect]
     Indication: ANAESTHESIA
     Route: 040

REACTIONS (5)
  - Loss of consciousness [None]
  - Blood pressure systolic decreased [None]
  - Ventricular fibrillation [None]
  - Ventricular tachycardia [None]
  - Toxicity to various agents [None]
